FAERS Safety Report 23962121 (Version 1)
Quarter: 2024Q2

REPORT INFORMATION
  Report Type: Spontaneous
  Country: US (occurrence: None)
  Receive Date: 20240610
  Receipt Date: 20240610
  Transmission Date: 20240717
  Serious: Yes (Hospitalization)
  Sender: FDA-Public Use
  Company Number: None

PATIENT
  Age: 63 Year
  Sex: Male
  Weight: 73.31 kg

DRUGS (17)
  1. MYCOPHENOLIC ACID [Suspect]
     Active Substance: MYCOPHENOLIC ACID
     Indication: Liver transplant
     Dosage: 750 MG TWICE A DAY ORAL?
     Route: 048
     Dates: start: 20240524
  2. TACROLIMUS [Suspect]
     Active Substance: TACROLIMUS
     Indication: Liver transplant
     Dosage: 4 MG TWICE A DAY ORAL?
     Route: 048
     Dates: start: 20240524
  3. Carvedilol 3.125 mg tabs [Concomitant]
  4. Clonidine 0.5 mg/24 hr weekly patch [Concomitant]
  5. FOLIC ACID [Concomitant]
     Active Substance: FOLIC ACID
  6. GABAPENTIN [Concomitant]
     Active Substance: GABAPENTIN
  7. G;ipizide 5 mg tabs [Concomitant]
  8. Mag oxide 400 mg tabs [Concomitant]
  9. Omeprazole 20 mg caps [Concomitant]
  10. Oxycodone 5 mg tabs [Concomitant]
  11. Prednisolone 5 mg tabs [Concomitant]
  12. Selenium 200 mg tabs [Concomitant]
  13. Bactrim 400 mg/80 mg tabs [Concomitant]
  14. Temazepam 15 mg caps [Concomitant]
  15. Valganciclovir 450 mg tabs [Concomitant]
  16. Vitamin C 250 MG TABS [Concomitant]
  17. VIT D 2 50,000 IU CAPSULES [Concomitant]

REACTIONS (1)
  - Back pain [None]

NARRATIVE: CASE EVENT DATE: 20240610
